FAERS Safety Report 10180585 (Version 1)
Quarter: 2014Q2

REPORT INFORMATION
  Report Type: Spontaneous
  Country: US (occurrence: US)
  Receive Date: 20140519
  Receipt Date: 20140519
  Transmission Date: 20141212
  Serious: No
  Sender: FDA-Public Use
  Company Number: US-AMGEN INC.-USASP2014003482

PATIENT
  Age: 83 Year
  Sex: Female

DRUGS (2)
  1. PROLIA [Suspect]
     Indication: BONE LOSS
     Dosage: UNK
     Route: 065
  2. EXEMESTANE [Concomitant]

REACTIONS (6)
  - Fatigue [Unknown]
  - Myalgia [Unknown]
  - Pruritus [Unknown]
  - Constipation [Unknown]
  - Musculoskeletal pain [Unknown]
  - Pain in extremity [Unknown]
